FAERS Safety Report 25817099 (Version 2)
Quarter: 2025Q3

REPORT INFORMATION
  Report Type: Spontaneous
  Country: EU (occurrence: EU)
  Receive Date: 20250918
  Receipt Date: 20250925
  Transmission Date: 20251021
  Serious: Yes (Death)
  Sender: MYLAN
  Company Number: EU-SUN PHARMACEUTICAL INDUSTRIES LTD-2019RR-202945

PATIENT
  Age: 21 Year
  Sex: Female

DRUGS (8)
  1. PREGABALIN [Suspect]
     Active Substance: PREGABALIN
     Indication: Product used for unknown indication
  2. PREGABALIN [Suspect]
     Active Substance: PREGABALIN
     Route: 065
  3. PREGABALIN [Suspect]
     Active Substance: PREGABALIN
     Route: 065
  4. PREGABALIN [Suspect]
     Active Substance: PREGABALIN
  5. HEROIN [Suspect]
     Active Substance: DIAMORPHINE
     Indication: Product used for unknown indication
  6. HEROIN [Suspect]
     Active Substance: DIAMORPHINE
     Route: 065
  7. HEROIN [Suspect]
     Active Substance: DIAMORPHINE
     Route: 065
  8. HEROIN [Suspect]
     Active Substance: DIAMORPHINE

REACTIONS (1)
  - Toxicity to various agents [Fatal]
